FAERS Safety Report 6270106-3 (Version None)
Quarter: 2009Q3

REPORT INFORMATION
  Report Type: 
  Country: None (occurrence: None)
  Receive Date: 20090716
  Receipt Date: 20090409
  Transmission Date: 20100115
  Serious: No
  Sender: FDA-Public Use
  Company Number: US-BAYER-200918174NA

PATIENT
  Age: 23 Year
  Sex: Female

DRUGS (1)
  1. MIRENA [Suspect]
     Indication: CONTRACEPTION
     Dosage: CONTINUOS
     Route: 015
     Dates: start: 20081113

REACTIONS (7)
  - ABDOMINAL PAIN [None]
  - AMENORRHOEA [None]
  - BREAST PAIN [None]
  - FATIGUE [None]
  - NAUSEA [None]
  - PAIN [None]
  - VAGINAL HAEMORRHAGE [None]
